FAERS Safety Report 6093570-1 (Version None)
Quarter: 2009Q1

REPORT INFORMATION
  Report Type: 
  Country: None (occurrence: None)
  Receive Date: 20090226
  Receipt Date: 20090218
  Transmission Date: 20090719
  Serious: Yes (Death, Hospitalization)
  Sender: FDA-Public Use
  Company Number: US-TEVA-181720USA

PATIENT
  Age: 55 Year
  Sex: Male
  Weight: 98.4 kg

DRUGS (8)
  1. BUMETANIDE TABLETS USP, 0.5MG, 1MG, 2MG [Suspect]
     Indication: OEDEMA
     Route: 042
     Dates: start: 20081111, end: 20081111
  2. METOLAZONE [Concomitant]
     Route: 042
     Dates: start: 20081111, end: 20081111
  3. INSULIN GLARGINE [Concomitant]
     Indication: DIABETES MELLITUS
  4. INSULIN [Concomitant]
     Indication: DIABETES MELLITUS
     Dosage: 70/30
  5. DILTIAZEM [Concomitant]
  6. DOBUTAMINE HCL [Concomitant]
  7. ACTIVASE [Concomitant]
  8. AMINOCAPROIC ACID [Concomitant]
     Dosage: DURING SURGERY FOR CABG

REACTIONS (4)
  - DYSPNOEA [None]
  - HYPERTENSION [None]
  - PULSE ABSENT [None]
  - UNRESPONSIVE TO STIMULI [None]
